FAERS Safety Report 6596885-3 (Version None)
Quarter: 2010Q1

REPORT INFORMATION
  Report Type: 
  Country: None (occurrence: None)
  Receive Date: 20100223
  Receipt Date: 20100217
  Transmission Date: 20100710
  Serious: Yes (Hospitalization, Other)
  Sender: FDA-Public Use
  Company Number: BR-ABBOTT-10P-020-0627228-00

PATIENT
  Sex: Female
  Weight: 70 kg

DRUGS (5)
  1. KALETRA [Suspect]
     Indication: HIV INFECTION
     Route: 048
     Dates: start: 20080101
  2. FLUOXETINE [Concomitant]
     Indication: DEPRESSION
     Route: 048
  3. PROPRANOLOL HYDROCHLORIDE [Concomitant]
     Indication: HYPERTENSION
     Dosage: BID
     Route: 048
  4. DIPYRONE [Concomitant]
     Indication: HEADACHE
     Dosage: 25 DROPS DAILY
     Route: 048
  5. ZIDOVUDINE [Concomitant]
     Indication: HIV INFECTION
     Route: 048
     Dates: start: 20080101

REACTIONS (6)
  - DIZZINESS [None]
  - DYSPNOEA [None]
  - FATIGUE [None]
  - FEELING OF DESPAIR [None]
  - FINGER AMPUTATION [None]
  - TOE AMPUTATION [None]
